FAERS Safety Report 22035977 (Version 1)
Quarter: 2023Q1

REPORT INFORMATION
  Report Type: Spontaneous
  Country: SA (occurrence: SA)
  Receive Date: 20230224
  Receipt Date: 20230224
  Transmission Date: 20230418
  Serious: Yes (Hospitalization, Other)
  Sender: FDA-Public Use
  Company Number: SA-NOVOPROD-1023269

PATIENT
  Sex: Male

DRUGS (1)
  1. LEVEMIR [Suspect]
     Active Substance: INSULIN DETEMIR
     Indication: Type 2 diabetes mellitus
     Dosage: UNK
     Route: 064

REACTIONS (11)
  - Seizure [Unknown]
  - Necrotising colitis [Unknown]
  - Intraventricular haemorrhage neonatal [Unknown]
  - Chronic respiratory disease [Unknown]
  - Premature baby [Unknown]
  - Apnoea [Unknown]
  - Hypoglycaemia neonatal [Unknown]
  - Lactose intolerance [Unknown]
  - Weight gain poor [Unknown]
  - Vomiting [Unknown]
  - Foetal exposure during pregnancy [Unknown]
